FAERS Safety Report 19749878 (Version 4)
Quarter: 2021Q4

REPORT INFORMATION
  Report Type: Spontaneous
  Country: US (occurrence: US)
  Receive Date: 20210826
  Receipt Date: 20211215
  Transmission Date: 20220303
  Serious: No
  Sender: FDA-Public Use
  Company Number: NVSC2021US189393

PATIENT
  Sex: Female

DRUGS (2)
  1. ESTRADIOL [Suspect]
     Active Substance: ESTRADIOL
     Indication: Hysterectomy
     Dosage: UNK
     Route: 062
     Dates: start: 20210730
  2. MINIVELLE [Suspect]
     Active Substance: ESTRADIOL
     Indication: Hysterectomy
     Dosage: UNK
     Route: 062

REACTIONS (5)
  - Dyspnoea [Unknown]
  - Skin irritation [Unknown]
  - Hot flush [Unknown]
  - Abdominal distension [Unknown]
  - Product adhesion issue [Unknown]
